FAERS Safety Report 14861202 (Version 1)
Quarter: 2018Q2

REPORT INFORMATION
  Report Type: Spontaneous
  Country: US (occurrence: US)
  Receive Date: 20180508
  Receipt Date: 20180508
  Transmission Date: 20180711
  Serious: Yes (Hospitalization, Other)
  Sender: FDA-Public Use
  Company Number: US-SA-2018SA123030

PATIENT
  Sex: Male

DRUGS (3)
  1. ASPIRIN. [Suspect]
     Active Substance: ASPIRIN
     Route: 065
  2. PLAVIX [Suspect]
     Active Substance: CLOPIDOGREL BISULFATE
     Route: 048
  3. ELIQUIS [Suspect]
     Active Substance: APIXABAN
     Route: 065

REACTIONS (5)
  - Myocardial infarction [Unknown]
  - Intestinal haemorrhage [Unknown]
  - Blindness unilateral [Unknown]
  - Asthenia [Unknown]
  - Ocular vascular disorder [Unknown]
